FAERS Safety Report 9051867 (Version 1)
Quarter: 2013Q1

REPORT INFORMATION
  Report Type: Spontaneous
  Country: US (occurrence: None)
  Receive Date: 20130130
  Receipt Date: 20130130
  Transmission Date: 20140127
  Serious: Yes (Hospitalization)
  Sender: FDA-Public Use
  Company Number: None

PATIENT
  Age: 75 Year
  Sex: Male
  Weight: 75.6 kg

DRUGS (4)
  1. GLYBURIDE [Suspect]
     Indication: ACCIDENTAL EXPOSURE TO PRODUCT
     Route: 048
  2. HCTZ [Concomitant]
  3. COREG [Concomitant]
  4. LISINOPRIL [Concomitant]

REACTIONS (5)
  - Hypoglycaemia [None]
  - Accelerated hypertension [None]
  - Dysarthria [None]
  - Wrong drug administered [None]
  - Mental status changes [None]
